FAERS Safety Report 10250237 (Version 2)
Quarter: 2014Q2

REPORT INFORMATION
  Report Type: Spontaneous
  Country: US (occurrence: None)
  Receive Date: 20140618
  Receipt Date: 20140625
  Transmission Date: 20141212
  Serious: Yes (Other)
  Sender: FDA-Public Use
  Company Number: A1076733A

PATIENT
  Age: 51 Year
  Sex: Female

DRUGS (2)
  1. CAMPHOR, MENTHOL, MENTHYL SALICYLATE [Suspect]
     Indication: URTICARIA
     Route: 061
  2. DIPHENHYDRAMINE HCL [Concomitant]

REACTIONS (4)
  - Loss of consciousness [None]
  - Insomnia [None]
  - Asthenia [None]
  - Syncope [None]
